FAERS Safety Report 16222503 (Version 1)
Quarter: 2019Q2

REPORT INFORMATION
  Report Type: Spontaneous
  Country: US (occurrence: US)
  Receive Date: 20190422
  Receipt Date: 20190422
  Transmission Date: 20190711
  Serious: No
  Sender: FDA-Public Use
  Company Number: US-BIOGEN-2019BI00725504

PATIENT
  Sex: Female

DRUGS (1)
  1. TECFIDERA [Suspect]
     Active Substance: DIMETHYL FUMARATE
     Indication: MULTIPLE SCLEROSIS
     Route: 048
     Dates: start: 20130729

REACTIONS (7)
  - Paraesthesia [Unknown]
  - Affect lability [Unknown]
  - Agitation [Unknown]
  - Fatigue [Unknown]
  - Pruritus [Unknown]
  - Nervousness [Unknown]
  - Emotional disorder [Unknown]
